FAERS Safety Report 4731619-6 (Version None)
Quarter: 2005Q3

REPORT INFORMATION
  Report Type: 
  Country: None (occurrence: None)
  Receive Date: 20050801
  Receipt Date: 20050801
  Transmission Date: 20060218
  Serious: Yes (Hospitalization)
  Sender: FDA-Public Use
  Company Number: None

PATIENT
  Age: 48 Year
  Sex: Male
  Weight: 69.2189 kg

DRUGS (1)
  1. ANTITHYMOCYTE GLOBULIN [Suspect]
     Indication: RENAL TRANSPLANT
     Dosage: 125 MG IV OVER 4 HOURS
     Route: 042
     Dates: start: 20050511, end: 20050515

REACTIONS (9)
  - BLOOD CREATININE INCREASED [None]
  - CHILLS [None]
  - COMPLICATIONS OF TRANSPLANT SURGERY [None]
  - LEUKOCYTOSIS [None]
  - MUSCULOSKELETAL STIFFNESS [None]
  - MYALGIA [None]
  - PHARYNGOLARYNGEAL PAIN [None]
  - SERUM SICKNESS [None]
  - THROMBOCYTOPENIA [None]
